FAERS Safety Report 6780920-3 (Version None)
Quarter: 2010Q2

REPORT INFORMATION
  Report Type: 
  Country: None (occurrence: None)
  Receive Date: 20100615
  Receipt Date: 20100602
  Transmission Date: 20101027
  Serious: Yes (Death, Hospitalization)
  Sender: FDA-Public Use
  Company Number: 430004L08ESP

PATIENT
  Age: 33 Year
  Sex: Female

DRUGS (1)
  1. MITOXANTRONE [Suspect]
     Indication: MULTIPLE SCLEROSIS
     Dosage: 10 MG/M2, 1 IN 3 M
     Dates: start: 20051101, end: 20070601

REACTIONS (7)
  - ACUTE PROMYELOCYTIC LEUKAEMIA [None]
  - DECREASED APPETITE [None]
  - DEPRESSION [None]
  - HAEMATOMA [None]
  - LOWER RESPIRATORY TRACT INFECTION BACTERIAL [None]
  - RELAPSING-REMITTING MULTIPLE SCLEROSIS [None]
  - WEIGHT DECREASED [None]
